FAERS Safety Report 17174060 (Version 3)
Quarter: 2020Q2

REPORT INFORMATION
  Report Type: Report from Study
  Country: US (occurrence: US)
  Receive Date: 20191218
  Receipt Date: 20200415
  Transmission Date: 20200713
  Serious: Yes (Hospitalization)
  Sender: FDA-Public Use
  Company Number: US-ROCHE-2497520

PATIENT
  Age: 81 Year
  Sex: Male
  Weight: 104.8 kg

DRUGS (19)
  1. TOPROL XL [Concomitant]
     Active Substance: METOPROLOL SUCCINATE
  2. LIPITOR [Concomitant]
     Active Substance: ATORVASTATIN CALCIUM
  3. OBINUTUZUMAB. [Suspect]
     Active Substance: OBINUTUZUMAB
     Indication: CHRONIC LYMPHOCYTIC LEUKAEMIA
     Dosage: ON 15/NOV/2019, HE RECEIVED RECENT DOSE OF OBINUTUZUMAB.
     Route: 042
     Dates: start: 20191114
  4. ZOFRAN [Concomitant]
     Active Substance: ONDANSETRON HYDROCHLORIDE
  5. LASIX [Concomitant]
     Active Substance: FUROSEMIDE
  6. MICRO-K [Concomitant]
     Active Substance: POTASSIUM CHLORIDE
  7. NITROSTAT [Concomitant]
     Active Substance: NITROGLYCERIN
  8. RASBURICASE [Concomitant]
     Active Substance: RASBURICASE
     Route: 042
  9. IMBRUVICA [Concomitant]
     Active Substance: IBRUTINIB
  10. ZYLOPRIM [Concomitant]
     Active Substance: ALLOPURINOL
  11. ANORO ELLIPTA [Concomitant]
     Active Substance: UMECLIDINIUM BROMIDE\VILANTEROL TRIFENATATE
  12. ELIQUIS [Concomitant]
     Active Substance: APIXABAN
  13. HYDROCORTISONE. [Concomitant]
     Active Substance: HYDROCORTISONE
  14. ALLOPURINOL. [Concomitant]
     Active Substance: ALLOPURINOL
  15. NORVASC [Concomitant]
     Active Substance: AMLODIPINE BESYLATE
  16. IBRUTINIB [Suspect]
     Active Substance: IBRUTINIB
     Indication: CHRONIC LYMPHOCYTIC LEUKAEMIA
     Dosage: ON 21/NOV/2019, HE RECEIVED RECENT DOSE OF 21/NOV/2019.
     Route: 048
     Dates: start: 20191114
  17. PLAVIX [Concomitant]
     Active Substance: CLOPIDOGREL BISULFATE
  18. LOSARTAN. [Concomitant]
     Active Substance: LOSARTAN
  19. IMDUR [Concomitant]
     Active Substance: ISOSORBIDE MONONITRATE

REACTIONS (2)
  - Muscular weakness [Unknown]
  - Hypotension [Not Recovered/Not Resolved]

NARRATIVE: CASE EVENT DATE: 20191121
